FAERS Safety Report 9895089 (Version 2)
Quarter: 2014Q1

REPORT INFORMATION
  Report Type: Spontaneous
  Country: US (occurrence: US)
  Receive Date: 20140213
  Receipt Date: 20140213
  Transmission Date: 20141002
  Serious: No
  Sender: FDA-Public Use
  Company Number: US-BRISTOL-MYERS SQUIBB COMPANY-18596056

PATIENT
  Age: 56 Year
  Sex: Female

DRUGS (5)
  1. ABATACEPT SUBQ INJECTION 125MG/ML [Suspect]
     Dosage: HAS HAD 4 INJECTIONS?INJ SOL
     Route: 058
  2. METHOTREXATE [Concomitant]
  3. MOBIC [Concomitant]
  4. FOLIC ACID [Concomitant]
  5. NORVASC [Concomitant]

REACTIONS (2)
  - Pain [Not Recovered/Not Resolved]
  - Drug ineffective [Unknown]
